FAERS Safety Report 22366775 (Version 1)
Quarter: 2023Q2

REPORT INFORMATION
  Report Type: Spontaneous
  Country: US (occurrence: US)
  Receive Date: 20230525
  Receipt Date: 20230525
  Transmission Date: 20230722
  Serious: No
  Sender: FDA-Public Use
  Company Number: US-SANOFI-01623527

PATIENT
  Age: 43 Year
  Sex: Female

DRUGS (1)
  1. DUPIXENT [Suspect]
     Active Substance: DUPILUMAB
     Indication: Dermatitis atopic
     Dosage: 300 MG, QOW
     Route: 058

REACTIONS (8)
  - Influenza [Unknown]
  - Pain [Unknown]
  - Fatigue [Unknown]
  - Skin discolouration [Unknown]
  - Contusion [Unknown]
  - Skin exfoliation [Unknown]
  - Oral herpes [Unknown]
  - Rash macular [Unknown]
